FAERS Safety Report 25039061 (Version 1)
Quarter: 2025Q1

REPORT INFORMATION
  Report Type: Spontaneous
  Country: JP (occurrence: JP)
  Receive Date: 20250305
  Receipt Date: 20250305
  Transmission Date: 20250409
  Serious: Yes (Death, Other)
  Sender: GENMAB
  Company Number: JP-GENMAB-2025-00329

PATIENT
  Age: 79 Year
  Sex: Male

DRUGS (6)
  1. EPKINLY [Suspect]
     Active Substance: EPCORITAMAB-BYSP
     Indication: Diffuse large B-cell lymphoma refractory
     Route: 058
     Dates: start: 20250114, end: 20250114
  2. EPKINLY [Suspect]
     Active Substance: EPCORITAMAB-BYSP
     Route: 058
     Dates: start: 20250121, end: 20250121
  3. EPKINLY [Suspect]
     Active Substance: EPCORITAMAB-BYSP
     Route: 058
     Dates: start: 20250128, end: 20250212
  4. CORTICOTROPIN [Concomitant]
     Active Substance: CORTICOTROPIN
     Indication: Prophylaxis
     Dates: start: 20250114, end: 20250218
  5. ANTIHISTAMINES NOS [Concomitant]
     Active Substance: ANTIHISTAMINES NOS
     Indication: Prophylaxis
     Dates: start: 20250114, end: 20250215
  6. UNSPECIFIED INGREDIENT [Concomitant]
     Active Substance: UNSPECIFIED INGREDIENT
     Indication: Prophylaxis
     Dates: start: 20250114, end: 20250215

REACTIONS (2)
  - Cytokine release syndrome [Recovered/Resolved]
  - Diffuse large B-cell lymphoma refractory [Fatal]

NARRATIVE: CASE EVENT DATE: 20250129
